FAERS Safety Report 21699123 (Version 2)
Quarter: 2022Q4

REPORT INFORMATION
  Report Type: Spontaneous
  Country: ZA (occurrence: ZA)
  Receive Date: 20221208
  Receipt Date: 20221215
  Transmission Date: 20230113
  Serious: Yes (Death, Other)
  Sender: FDA-Public Use
  Company Number: ZA-CELLTRION INC.-2022ZA020639

PATIENT

DRUGS (17)
  1. RITUXIMAB [Suspect]
     Active Substance: RITUXIMAB
     Indication: Chronic lymphocytic leukaemia
     Dosage: 700 MG DAILY DOSAGE (STRENGTH: 100MG)
     Route: 042
     Dates: start: 20220804, end: 20221031
  2. RITUXIMAB [Suspect]
     Active Substance: RITUXIMAB
     Dosage: (STRENGTH: 500 MG) 700MG IN 1L SALINE OVER 3HOURS. D1Q21.
     Route: 065
  3. CHLORPHENIRAMINE MALEATE [Suspect]
     Active Substance: CHLORPHENIRAMINE MALEATE
     Indication: Chemotherapy
     Dosage: 4 MILLIGRAM (CHEMOTHERAPY REGIME EVERY THREE WEEKS)
     Route: 048
     Dates: start: 20220804, end: 20221031
  4. CHLORPHENIRAMINE MALEATE [Suspect]
     Active Substance: CHLORPHENIRAMINE MALEATE
     Indication: Antiallergic therapy
  5. PALONOSETRON HYDROCHLORIDE [Suspect]
     Active Substance: PALONOSETRON HYDROCHLORIDE
     Indication: Chemotherapy
     Dosage: 0.25 MG (CHEMOTHERAPY REGIME EVERY THREE WEEKS)
     Route: 042
     Dates: start: 20220804, end: 20221031
  6. PALONOSETRON HYDROCHLORIDE [Suspect]
     Active Substance: PALONOSETRON HYDROCHLORIDE
     Indication: Vomiting
  7. DEXAMETHASONE SODIUM PHOSPHATE [Suspect]
     Active Substance: DEXAMETHASONE SODIUM PHOSPHATE
     Indication: Chemotherapy
     Dosage: 12 MG (CHEMOTHERAPY REGIME EVERY THREE WEEKS)
     Route: 042
     Dates: start: 20220804, end: 20221031
  8. DEXAMETHASONE SODIUM PHOSPHATE [Suspect]
     Active Substance: DEXAMETHASONE SODIUM PHOSPHATE
     Indication: Steroid therapy
  9. VINCRISTINE [Suspect]
     Active Substance: VINCRISTINE
     Indication: Chemotherapy
     Dosage: 2 MG (CHEMOTHERAPY REGIME EVERY THREE WEEKS)
     Route: 042
     Dates: start: 20220804, end: 20221010
  10. CYCLOPHOSPHAMIDE [Suspect]
     Active Substance: CYCLOPHOSPHAMIDE
     Indication: Chemotherapy
     Dosage: 1.5 GRAM (CHEMOTHERAPY REGIME EVERY THREE WEEKS)
     Route: 042
     Dates: start: 20220804, end: 20221031
  11. METOCLOPRAMIDE HYDROCHLORIDE [Suspect]
     Active Substance: METOCLOPRAMIDE HYDROCHLORIDE
     Indication: Chemotherapy
     Dosage: 10 MG (CHEMOTHERAPY REGIME EVERY THREE WEEKS)
     Route: 048
     Dates: start: 20220804, end: 20221031
  12. PREDNISONE [Suspect]
     Active Substance: PREDNISONE
     Indication: Chemotherapy
     Dosage: 5 MG (CHEMOTHERAPY REGIME EVERY THREE WEEKS)
     Route: 048
     Dates: start: 20220804, end: 20221031
  13. Tyloprim [Concomitant]
     Dosage: 300 MILLIGRAM, DAILY
     Route: 048
     Dates: start: 20220804
  14. SULFAMETHOXAZOLE\TRIMETHOPRIM [Concomitant]
     Active Substance: SULFAMETHOXAZOLE\TRIMETHOPRIM
     Dosage: 960 MG, DAILY
     Route: 048
     Dates: start: 20220804
  15. Citrosoda [Concomitant]
     Dosage: 10 ML, TID
     Route: 048
     Dates: start: 20220804
  16. MOVICOL [Concomitant]
     Active Substance: POLYETHYLENE GLYCOL 3350\POTASSIUM CHLORIDE\SODIUM BICARBONATE\SODIUM CHLORIDE
     Dosage: 1 SACHET, BID
     Route: 048
  17. TAMOLTRA [Concomitant]
     Indication: Pain
     Dosage: 2 TABLETS, PRN
     Route: 048
     Dates: start: 20220804

REACTIONS (5)
  - Death [Fatal]
  - Hyperhidrosis [Recovered/Resolved]
  - Flushing [Recovered/Resolved]
  - Palpitations [Recovered/Resolved]
  - Chills [Recovered/Resolved]

NARRATIVE: CASE EVENT DATE: 20221010
